FAERS Safety Report 11257901 (Version 1)
Quarter: 2015Q3

REPORT INFORMATION
  Report Type: Spontaneous
  Country: US (occurrence: None)
  Receive Date: 20150708
  Receipt Date: 20150708
  Transmission Date: 20151125
  Serious: Yes (Other)
  Sender: FDA-Public Use
  Company Number: None

PATIENT
  Age: 26 Year
  Sex: Female
  Weight: 56.7 kg

DRUGS (7)
  1. NEXPLANON [Concomitant]
     Active Substance: ETONOGESTREL
  2. ALBUTEROL. [Concomitant]
     Active Substance: ALBUTEROL
  3. MULTI VITAMIN [Concomitant]
     Active Substance: VITAMINS
  4. NEXPLANON [Suspect]
     Active Substance: ETONOGESTREL
  5. ZYRTEC [Concomitant]
     Active Substance: CETIRIZINE HYDROCHLORIDE
  6. NAPROXEN. [Concomitant]
     Active Substance: NAPROXEN
  7. VALTREX [Concomitant]
     Active Substance: VALACYCLOVIR HYDROCHLORIDE

REACTIONS (2)
  - Menorrhagia [None]
  - Dysmenorrhoea [None]

NARRATIVE: CASE EVENT DATE: 20150707
